FAERS Safety Report 19133557 (Version 1)
Quarter: 2021Q2

REPORT INFORMATION
  Report Type: Spontaneous
  Country: US (occurrence: US)
  Receive Date: 20210414
  Receipt Date: 20210414
  Transmission Date: 20210717
  Serious: Yes (Hospitalization)
  Sender: FDA-Public Use
  Company Number: None

PATIENT
  Age: 81 Year
  Sex: Male
  Weight: 58.9 kg

DRUGS (3)
  1. IRINOTECAN LIPOSOME (MM?398, ONIVYDE) [Suspect]
     Active Substance: IRINOTECAN HYDROCHLORIDE
     Dates: end: 20210323
  2. LEUCOVORIN CALCIUM. [Suspect]
     Active Substance: LEUCOVORIN CALCIUM
     Dates: end: 20210323
  3. 5?FLUOROURACIL (5?FU) [Suspect]
     Active Substance: FLUOROURACIL
     Dates: end: 20210325

REACTIONS (7)
  - Metastases to liver [None]
  - Pancreatic mass [None]
  - Hyperhidrosis [None]
  - Lactic acidosis [None]
  - Atrial fibrillation [None]
  - Abdominal pain [None]
  - Urinary retention [None]

NARRATIVE: CASE EVENT DATE: 20210404
